FAERS Safety Report 10019739 (Version 2)
Quarter: 2014Q2

REPORT INFORMATION
  Report Type: Spontaneous
  Country: US (occurrence: US)
  Receive Date: 20140318
  Receipt Date: 20140618
  Transmission Date: 20141212
  Serious: No
  Sender: FDA-Public Use
  Company Number: US-GALDERMA-US14000129

PATIENT
  Age: 62 Year
  Sex: Female

DRUGS (18)
  1. MIRVASO (BRIMONIDINE) TOPICAL GEL, 0.33% [Suspect]
     Indication: ROSACEA
     Dosage: 0.33%
     Route: 061
     Dates: start: 20131112
  2. AMLODIPINE [Concomitant]
     Indication: HYPERTENSION
     Dosage: 2.5 MG
     Route: 048
     Dates: start: 2011
  3. FISH OIL [Concomitant]
     Indication: NUTRITIONAL SUPPLEMENTATION
     Route: 048
  4. VITAMIN C [Concomitant]
     Indication: VITAMIN SUPPLEMENTATION
     Route: 048
  5. BARE ESSENTIALS POWDER [Concomitant]
     Route: 061
  6. COVERGIRL CAKE MAKE-UP [Concomitant]
     Route: 061
  7. AVEENO ULTRA CALMING MOISTURIZER SPF15 [Concomitant]
     Indication: DRY SKIN PROPHYLAXIS
     Route: 061
  8. NEUTROGENA NATURALS CLEANSER [Concomitant]
     Indication: THERAPEUTIC SKIN CARE TOPICAL
     Route: 061
  9. AVEENO ULTRA CALMING FOAMING CLEANSER [Concomitant]
     Indication: THERAPEUTIC SKIN CARE TOPICAL
     Route: 061
  10. VITAMIN D3 [Concomitant]
  11. MULTIVITAMIN [Concomitant]
  12. BIOTIN [Concomitant]
  13. CLINIQUE REDNESS SOLUTIONS INSTANT RELIEF MINERAL POWDER [Concomitant]
  14. NYC CHEEK GLOW POWDER BLUSH [Concomitant]
  15. SIMPLE FOAMING CLEANSER [Concomitant]
  16. SIMPLE MOISTURIZING FACIAL WASH [Concomitant]
  17. CLINIQUE DRAMATICALLY DIFFERENT MOISTURIZING LOTION [Concomitant]
  18. MEGA MUSHROOM SKIN RELIEF ADVANCED FACE SERUM [Concomitant]

REACTIONS (7)
  - Rhinorrhoea [Not Recovered/Not Resolved]
  - Skin irritation [Not Recovered/Not Resolved]
  - Peripheral coldness [Recovered/Resolved]
  - Erythema [Not Recovered/Not Resolved]
  - Flushing [Not Recovered/Not Resolved]
  - Skin warm [Recovered/Resolved]
  - Drug ineffective [Not Recovered/Not Resolved]
